FAERS Safety Report 21610767 (Version 2)
Quarter: 2022Q4

REPORT INFORMATION
  Report Type: Spontaneous
  Country: DE (occurrence: None)
  Receive Date: 20221117
  Receipt Date: 20221206
  Transmission Date: 20230113
  Serious: Yes (Hospitalization, Disabling, Other)
  Sender: FDA-Public Use
  Company Number: DE-ROCHE-3220371

PATIENT
  Age: 78 Year
  Sex: Female
  Weight: 80 kg

DRUGS (8)
  1. TOCILIZUMAB [Suspect]
     Active Substance: TOCILIZUMAB
     Indication: Giant cell arteritis
     Route: 058
     Dates: start: 201812, end: 202101
  2. TOCILIZUMAB [Suspect]
     Active Substance: TOCILIZUMAB
     Route: 058
     Dates: start: 202101, end: 20221110
  3. SARS-COV-2 VACCINE [Concomitant]
     Indication: COVID-19 immunisation
     Dosage: THREE ADMINISTRATIONS
     Dates: end: 202111
  4. XARELTO [Concomitant]
     Active Substance: RIVAROXABAN
     Dosage: ONGOING
     Dates: start: 201812
  5. NEBIVOLOL [Concomitant]
     Active Substance: NEBIVOLOL
     Indication: Hypertension
     Dosage: ONGOING
     Dates: start: 201806
  6. CANDESARTAN [Concomitant]
     Active Substance: CANDESARTAN
     Indication: Hypertension
     Dosage: ONGOING
     Dates: start: 201905
  7. PANTOPRAZOLE SODIUM [Concomitant]
     Active Substance: PANTOPRAZOLE SODIUM
     Dosage: ONGOING
  8. CITALOPRAM [Concomitant]
     Active Substance: CITALOPRAM HYDROBROMIDE

REACTIONS (5)
  - Pseudobulbar palsy [Not Recovered/Not Resolved]
  - Respiratory tract infection [Unknown]
  - Motor neurone disease [Not Recovered/Not Resolved]
  - Venous thrombosis limb [Recovered/Resolved]
  - Pulmonary embolism [Recovered/Resolved]

NARRATIVE: CASE EVENT DATE: 20181201
